FAERS Safety Report 6004636-6 (Version None)
Quarter: 2008Q4

REPORT INFORMATION
  Report Type: 
  Country: None (occurrence: None)
  Receive Date: 20081216
  Receipt Date: 20081210
  Transmission Date: 20090506
  Serious: Yes (Hospitalization)
  Sender: FDA-Public Use
  Company Number: US-ASTRAZENECA-2008UW27690

PATIENT
  Age: 36 Year
  Sex: Male

DRUGS (4)
  1. SEROQUEL [Suspect]
     Indication: BIPOLAR DISORDER
     Dosage: 400 MG
     Route: 048
     Dates: start: 19950801, end: 20081206
  2. DEPAKOTE ER [Suspect]
     Dosage: 500 MG
     Dates: start: 19950101
  3. XANAX [Concomitant]
     Indication: SLEEP DISORDER
     Dates: end: 20080619
  4. TEGRETOL [Concomitant]
     Dates: start: 20080901, end: 20080101

REACTIONS (8)
  - COMA [None]
  - GRAND MAL CONVULSION [None]
  - HAIR GROWTH ABNORMAL [None]
  - NAIL DISORDER [None]
  - PANIC ATTACK [None]
  - SYNCOPE [None]
  - TREMOR [None]
  - WEIGHT DECREASED [None]
